FAERS Safety Report 19349256 (Version 1)
Quarter: 2021Q2

REPORT INFORMATION
  Report Type: Report from Study
  Country: None (occurrence: DO)
  Receive Date: 20210531
  Receipt Date: 20210531
  Transmission Date: 20210717
  Serious: Yes (Hospitalization, Other)
  Sender: FDA-Public Use
  Company Number: DO-ABBVIE-21K-279-3927525-00

PATIENT
  Age: 28 Year
  Sex: Female
  Weight: 80 kg

DRUGS (1)
  1. HUMIRA [Suspect]
     Active Substance: ADALIMUMAB
     Indication: ANKYLOSING SPONDYLITIS
     Route: 058
     Dates: start: 20190627

REACTIONS (3)
  - Colitis ulcerative [Recovered/Resolved]
  - Feeding disorder [Recovered/Resolved]
  - Food intolerance [Recovering/Resolving]

NARRATIVE: CASE EVENT DATE: 202105
